FAERS Safety Report 6387876-6 (Version None)
Quarter: 2009Q3

REPORT INFORMATION
  Report Type: 
  Country: None (occurrence: None)
  Receive Date: 20090930
  Receipt Date: 20090914
  Transmission Date: 20100115
  Serious: Yes (Hospitalization)
  Sender: FDA-Public Use
  Company Number: 2009AL004333

PATIENT
  Age: 82 Year
  Sex: Female

DRUGS (5)
  1. DIGOXIN [Suspect]
     Dosage: PO
     Route: 048
  2. KEFLEX [Concomitant]
  3. ATENOLOL [Concomitant]
  4. LASIX [Concomitant]
  5. XOPENEX [Concomitant]

REACTIONS (7)
  - ASTHMA [None]
  - ATRIAL FIBRILLATION [None]
  - BRONCHITIS [None]
  - CARDIAC FAILURE CONGESTIVE [None]
  - HYPERTENSION [None]
  - OEDEMA PERIPHERAL [None]
  - UPPER RESPIRATORY TRACT INFECTION [None]
